FAERS Safety Report 13308531 (Version 1)
Quarter: 2017Q1

REPORT INFORMATION
  Report Type: Spontaneous
  Country: US (occurrence: US)
  Receive Date: 20170308
  Receipt Date: 20170308
  Transmission Date: 20170428
  Serious: Yes (Hospitalization)
  Sender: FDA-Public Use
  Company Number: None

PATIENT
  Age: 19 Year
  Sex: Female
  Weight: 92.3 kg

DRUGS (6)
  1. VINCRISTINE SULFATE. [Suspect]
     Active Substance: VINCRISTINE SULFATE
     Dates: end: 20170301
  2. METHOTREXATE. [Suspect]
     Active Substance: METHOTREXATE
     Dates: end: 20170222
  3. DAUNORUBICIN [Concomitant]
     Active Substance: DAUNORUBICIN
     Dates: end: 20170301
  4. ONCASPAR [Suspect]
     Active Substance: PEGASPARGASE
     Dates: end: 20170218
  5. PREDNISONE. [Suspect]
     Active Substance: PREDNISONE
     Dates: end: 20170303
  6. CYTARABINE. [Suspect]
     Active Substance: CYTARABINE
     Dates: end: 20170213

REACTIONS (4)
  - Alanine aminotransferase increased [None]
  - Nausea [None]
  - Abdominal pain [None]
  - Lipase increased [None]

NARRATIVE: CASE EVENT DATE: 20170303
